FAERS Safety Report 7156592-5 (Version None)
Quarter: 2010Q4

REPORT INFORMATION
  Report Type: 
  Country: None (occurrence: None)
  Receive Date: 20101214
  Receipt Date: 20091104
  Transmission Date: 20110411
  Serious: No
  Sender: FDA-Public Use
  Company Number: US-ASTRAZENECA-2009SE24410

PATIENT
  Sex: Female

DRUGS (4)
  1. CRESTOR [Suspect]
     Route: 048
     Dates: end: 20090101
  2. ALLOPURINOL [Concomitant]
     Dates: start: 20090731
  3. PRAVACHOL [Concomitant]
     Dates: start: 20091019
  4. VITAMIN D [Concomitant]

REACTIONS (1)
  - THROMBOCYTOPENIA [None]
